FAERS Safety Report 8575944-X (Version None)
Quarter: 2012Q3

REPORT INFORMATION
  Report Type: 
  Country: None (occurrence: None)
  Receive Date: 20120807
  Receipt Date: 20110727
  Transmission Date: 20120928
  Serious: No
  Sender: FDA-Public Use
  Company Number: US-PFIZER INC-K201100897

PATIENT
  Sex: Female

DRUGS (2)
  1. LEVOXYL [Suspect]
     Dosage: UNK
     Route: 048
  2. CYTOMEL [Suspect]
     Dosage: UNK
     Route: 048

REACTIONS (1)
  - ABDOMINAL PAIN UPPER [None]
